FAERS Safety Report 6774543-X (Version None)
Quarter: 2010Q2

REPORT INFORMATION
  Report Type: 
  Country: None (occurrence: None)
  Receive Date: 20100617
  Receipt Date: 20090821
  Transmission Date: 20101027
  Serious: No
  Sender: FDA-Public Use
  Company Number: A0804731A

PATIENT

DRUGS (2)
  1. WELLBUTRIN [Suspect]
     Indication: DRUG USE FOR UNKNOWN INDICATION
     Route: 065
  2. WELLBUTRIN [Suspect]
     Route: 065

REACTIONS (5)
  - BALANCE DISORDER [None]
  - DIZZINESS [None]
  - FEELING ABNORMAL [None]
  - MALAISE [None]
  - VIBRATORY SENSE INCREASED [None]
